FAERS Safety Report 16324881 (Version 1)
Quarter: 2019Q2

REPORT INFORMATION
  Report Type: Spontaneous
  Country: AU (occurrence: AU)
  Receive Date: 20190517
  Receipt Date: 20190517
  Transmission Date: 20190711
  Serious: Yes (Other)
  Sender: FDA-Public Use
  Company Number: AU-009507513-1905AUS006442

PATIENT
  Age: 3 Year
  Sex: Female

DRUGS (5)
  1. ELIDEL [Concomitant]
     Active Substance: PIMECROLIMUS
     Dosage: UNK
  2. PREDNISONE. [Suspect]
     Active Substance: PREDNISONE
     Indication: ECZEMA
     Dosage: UNK
     Route: 048
     Dates: start: 2018
  3. ELOCON [Suspect]
     Active Substance: MOMETASONE FUROATE
     Indication: ECZEMA
     Dosage: 15 GRAM
     Route: 061
     Dates: start: 2017, end: 201802
  4. HYDROCORTISONE. [Suspect]
     Active Substance: HYDROCORTISONE
     Indication: DERMATITIS
     Dosage: UNK
     Route: 061
     Dates: start: 201607, end: 2017
  5. ADVANTAN [Suspect]
     Active Substance: METHYLPREDNISOLONE ACEPONATE
     Dosage: 15 GRAM
     Route: 061
     Dates: start: 2017, end: 201802

REACTIONS (1)
  - Steroid withdrawal syndrome [Not Recovered/Not Resolved]
